FAERS Safety Report 12356534 (Version 1)
Quarter: 2016Q2

REPORT INFORMATION
  Report Type: Spontaneous
  Country: AU (occurrence: AU)
  Receive Date: 20160511
  Receipt Date: 20160511
  Transmission Date: 20160815
  Serious: Yes (Hospitalization)
  Sender: FDA-Public Use
  Company Number: AU-WATSON-2016-09736

PATIENT
  Age: 28 Year
  Sex: Male

DRUGS (2)
  1. THIORIDAZINE (UNKNOWN) [Suspect]
     Active Substance: THIORIDAZINE
     Indication: AGGRESSION
  2. THIORIDAZINE (UNKNOWN) [Suspect]
     Active Substance: THIORIDAZINE
     Indication: MENTAL IMPAIRMENT
     Dosage: 175 MG, DAILY
     Route: 065
     Dates: end: 2008

REACTIONS (2)
  - Drug withdrawal syndrome [Recovered/Resolved]
  - Substance-induced psychotic disorder [Recovered/Resolved]
